FAERS Safety Report 4262394-X (Version None)
Quarter: 2004Q1

REPORT INFORMATION
  Report Type: 
  Country: None (occurrence: None)
  Receive Date: 20040102
  Receipt Date: 20031219
  Transmission Date: 20041129
  Serious: Yes (Hospitalization, Other)
  Sender: FDA-Public Use
  Company Number: PHBS2003CH14263

PATIENT
  Age: 54 Year
  Sex: Female
  Weight: 105 kg

DRUGS (6)
  1. LEPONEX [Suspect]
     Dosage: 225 MG/D
     Route: 065
  2. LESCOL FORTE [Suspect]
     Indication: HYPERLIPIDAEMIA
     Dosage: 80 MG/D
     Route: 065
     Dates: end: 20031113
  3. EZETROL [Suspect]
     Dosage: 10 MG/D
     Route: 065
     Dates: start: 20031106, end: 20031113
  4. LIPANTIL [Suspect]
     Dosage: 200 MG/D
     Dates: end: 20031113
  5. NEXIUM [Concomitant]
     Dosage: 40 MG/D
     Route: 065
  6. PASPERTIN [Concomitant]

REACTIONS (2)
  - DRUG INTERACTION [None]
  - RHABDOMYOLYSIS [None]
